FAERS Safety Report 5630355-1 (Version None)
Quarter: 2008Q1

REPORT INFORMATION
  Report Type: 
  Country: None (occurrence: None)
  Receive Date: 20080219
  Receipt Date: 20080211
  Transmission Date: 20080703
  Serious: Yes (Disabling)
  Sender: FDA-Public Use
  Company Number: PHBS2008IT02082

PATIENT
  Sex: Female

DRUGS (2)
  1. AREDIA [Suspect]
     Route: 065
     Dates: start: 20010611, end: 20051102
  2. ZOMETA [Suspect]
     Route: 065
     Dates: start: 20010611, end: 20051102

REACTIONS (3)
  - JAW DISORDER [None]
  - MASTICATION DISORDER [None]
  - OSTEOMYELITIS [None]
